FAERS Safety Report 6462163-6 (Version None)
Quarter: 2009Q4

REPORT INFORMATION
  Report Type: 
  Country: None (occurrence: None)
  Receive Date: 20091130
  Receipt Date: 20091124
  Transmission Date: 20100525
  Serious: Yes (Death)
  Sender: FDA-Public Use
  Company Number: HU-BAYER-200712837GDS

PATIENT
  Age: 58 Year
  Sex: Female
  Weight: 71 kg

DRUGS (11)
  1. SORAFENIB [Suspect]
     Indication: NON-SMALL CELL LUNG CANCER
     Dosage: TOTAL DAILY DOSE: 400 MG
     Route: 048
     Dates: start: 20070328, end: 20070517
  2. CARBOPLATIN [Suspect]
     Indication: NON-SMALL CELL LUNG CANCER
     Route: 065
  3. PACLITAXEL [Suspect]
     Indication: NON-SMALL CELL LUNG CANCER
     Route: 065
  4. BETALOC ZOK [Concomitant]
     Indication: HYPERTENSION
     Route: 048
     Dates: end: 20070520
  5. RENITEC [Concomitant]
     Indication: HYPERTENSION
     Route: 048
     Dates: start: 19920101, end: 20070518
  6. BRINALDIX [Concomitant]
     Indication: HYPERTENSION
     Route: 048
     Dates: start: 19920101, end: 20070518
  7. KALDYUM [Concomitant]
     Indication: HYPOKALAEMIA
     Route: 048
     Dates: start: 20061101, end: 20070518
  8. AUGMENTIN [Concomitant]
     Indication: PYREXIA
     Route: 042
     Dates: start: 20070520, end: 20070520
  9. PARACETAMOL [Concomitant]
     Indication: PYREXIA
     Route: 048
     Dates: start: 20070520, end: 20070520
  10. NEUPOGEN [Concomitant]
     Indication: GRANULOCYTOPENIA
     Route: 058
     Dates: start: 20070520, end: 20070520
  11. GRANOCYTE [Concomitant]
     Indication: GRANULOCYTOPENIA
     Route: 058
     Dates: start: 20070520, end: 20070520

REACTIONS (1)
  - BRAIN OEDEMA [None]
